FAERS Safety Report 8287290-2 (Version None)
Quarter: 2012Q2

REPORT INFORMATION
  Report Type: 
  Country: None (occurrence: None)
  Receive Date: 20120416
  Receipt Date: 20120416
  Transmission Date: 20120825
  Serious: No
  Sender: FDA-Public Use
  Company Number: None

PATIENT
  Age: 15 Year
  Sex: Female
  Weight: 48.987 kg

DRUGS (1)
  1. BENZACLIN [Suspect]
     Indication: ACNE
     Dosage: 1/2 TEASPOON
     Route: 061

REACTIONS (4)
  - PRODUCT QUALITY ISSUE [None]
  - DRUG INEFFECTIVE [None]
  - LIQUID PRODUCT PHYSICAL ISSUE [None]
  - ACNE [None]
